FAERS Safety Report 17708361 (Version 1)
Quarter: 2020Q2

REPORT INFORMATION
  Report Type: Spontaneous
  Country: NL (occurrence: NL)
  Receive Date: 20200426
  Receipt Date: 20200426
  Transmission Date: 20200714
  Serious: Yes (Other)
  Sender: FDA-Public Use
  Company Number: NVSC2020NL108397

PATIENT
  Sex: Female
  Weight: 85 kg

DRUGS (1)
  1. ANASTROZOLE. [Suspect]
     Active Substance: ANASTROZOLE
     Indication: BREAST CANCER
     Dosage: 1 MG, QD (TABLET, 1 MG (MILLIGRAM), 1 KEER PER DAG, 1)
     Route: 065
     Dates: start: 20171223

REACTIONS (1)
  - Depression [Recovered/Resolved]
